FAERS Safety Report 24333905 (Version 1)
Quarter: 2024Q3

REPORT INFORMATION
  Report Type: Spontaneous
  Country: US (occurrence: None)
  Receive Date: 20240917
  Receipt Date: 20240917
  Transmission Date: 20241017
  Serious: Yes (Disabling)
  Sender: Public
  Company Number: None

PATIENT
  Age: 59 Year
  Sex: Male
  Weight: 99 kg

DRUGS (5)
  1. ROSUVASTATIN [Suspect]
     Active Substance: ROSUVASTATIN\ROSUVASTATIN CALCIUM
     Indication: Blood cholesterol increased
     Dosage: OTHER QUANTITY : 90 TABLET(S);?FREQUENCY : DAILY;?
     Route: 048
  2. CRESTOR [Suspect]
     Active Substance: ROSUVASTATIN CALCIUM
  3. METOPROLOL TARTRATE [Concomitant]
     Active Substance: METOPROLOL TARTRATE
  4. HYDRALAZINE [Concomitant]
     Active Substance: HYDRALAZINE HYDROCHLORIDE
  5. IBUPROFEN [Concomitant]
     Active Substance: IBUPROFEN

REACTIONS (5)
  - Pain in extremity [None]
  - Bedridden [None]
  - Pain in extremity [None]
  - Myalgia [None]
  - Muscle injury [None]

NARRATIVE: CASE EVENT DATE: 20240812
